FAERS Safety Report 10204825 (Version 2)
Quarter: 2014Q3

REPORT INFORMATION
  Report Type: Spontaneous
  Country: IT (occurrence: IT)
  Receive Date: 20140529
  Receipt Date: 20140904
  Transmission Date: 20150326
  Serious: Yes (Hospitalization)
  Sender: FDA-Public Use
  Company Number: IT-ABBVIE-14P-083-1242020-00

PATIENT
  Age: 70 Year
  Sex: Female

DRUGS (5)
  1. SIMVASTATIN. [Concomitant]
     Active Substance: SIMVASTATIN
     Indication: PRODUCT USED FOR UNKNOWN INDICATION
  2. SYCREST [Suspect]
     Active Substance: ASENAPINE MALEATE
     Indication: ABNORMAL BEHAVIOUR
     Route: 048
  3. DEPAKINE [Suspect]
     Active Substance: VALPROATE SODIUM
     Indication: ABNORMAL BEHAVIOUR
     Route: 048
  4. SODIUM VALPROATE [Concomitant]
     Active Substance: VALPROATE SODIUM
     Indication: PRODUCT USED FOR UNKNOWN INDICATION
  5. FLURAZEPAM HYDROCHLORIDE. [Suspect]
     Active Substance: FLURAZEPAM HYDROCHLORIDE
     Indication: PRODUCT USED FOR UNKNOWN INDICATION
     Route: 048

REACTIONS (6)
  - Hypernatraemia [Unknown]
  - Nephrogenic diabetes insipidus [Unknown]
  - Hypotension [Unknown]
  - General physical health deterioration [Unknown]
  - Depression [Unknown]
  - Coma [Unknown]

NARRATIVE: CASE EVENT DATE: 20140210
